FAERS Safety Report 5823361-5 (Version None)
Quarter: 2008Q3

REPORT INFORMATION
  Report Type: 
  Country: None (occurrence: None)
  Receive Date: 20080725
  Receipt Date: 20080723
  Transmission Date: 20090109
  Serious: Yes (Death, Hospitalization, Other)
  Sender: FDA-Public Use
  Company Number: GB-WYE-G01907108

PATIENT
  Age: 45 Year
  Sex: Male

DRUGS (12)
  1. IBUPROFEN [Suspect]
     Dosage: UNKNOWN
     Dates: start: 20080601
  2. ERYTHROMYCIN [Concomitant]
     Indication: LOWER RESPIRATORY TRACT INFECTION
     Route: 048
     Dates: start: 20080529, end: 20080603
  3. FERROUS SULFATE TAB [Concomitant]
     Indication: ANAEMIA
     Route: 048
     Dates: start: 20080418
  4. FLUOXETINE [Concomitant]
     Indication: DEPRESSION
     Route: 048
     Dates: start: 20071128
  5. SERETIDE [Concomitant]
     Indication: ASTHMA
     Route: 055
     Dates: start: 20040505
  6. OLANZAPINE [Concomitant]
     Indication: DEPRESSION
     Dosage: 20 MG (FREQUENCY UNKNOWN)
     Route: 048
  7. OMEPRAZOLE [Concomitant]
     Indication: DUODENITIS
     Route: 048
     Dates: start: 20040505, end: 20080601
  8. OMEPRAZOLE [Concomitant]
     Indication: GASTRITIS
     Route: 048
     Dates: start: 20080601
  9. ACETAMINOPHEN [Concomitant]
     Indication: BACK PAIN
     Dosage: 1 G EVERY 1 PRN
     Route: 048
     Dates: start: 20070511
  10. ALBUTEROL [Concomitant]
     Indication: ASTHMA
     Dosage: 1 DOSE EVERY 1 PRN
     Route: 055
     Dates: start: 20040106
  11. DULOXETINE [Concomitant]
     Indication: DEPRESSION
     Route: 048
     Dates: start: 20080609
  12. GABAPENTIN [Concomitant]
     Indication: SCIATICA
     Route: 048
     Dates: start: 20080410

REACTIONS (2)
  - BRAIN STEM INFARCTION [None]
  - GASTROINTESTINAL HAEMORRHAGE [None]
